FAERS Safety Report 24905659 (Version 1)
Quarter: 2025Q1

REPORT INFORMATION
  Report Type: Report from Study
  Country: US (occurrence: US)
  Receive Date: 20250130
  Receipt Date: 20250130
  Transmission Date: 20250409
  Serious: No
  Sender: HRA PHARMA
  Company Number: US-ORG100014127-2024000183

PATIENT
  Age: 62 Year
  Sex: Female

DRUGS (6)
  1. METOPIRONE [Suspect]
     Active Substance: METYRAPONE
     Indication: Benign neoplasm of adrenal gland
     Dates: start: 20231117, end: 2024
  2. ATORVASTATIN TAB 10 MG [Concomitant]
     Indication: Product used for unknown indication
  3. Cinacalcet Tab 30 mg [Concomitant]
     Indication: Product used for unknown indication
  4. LISINOPRIL [Concomitant]
     Active Substance: LISINOPRIL
     Indication: Product used for unknown indication
  5. Metformin Tab 850mg [Concomitant]
     Indication: Product used for unknown indication
  6. Propranolol Cap 60 mg  ER [Concomitant]
     Indication: Product used for unknown indication

REACTIONS (1)
  - Off label use [Unknown]
